FAERS Safety Report 4716533-4 (Version None)
Quarter: 2005Q3

REPORT INFORMATION
  Report Type: 
  Country: None (occurrence: None)
  Receive Date: 20050714
  Receipt Date: 20050704
  Transmission Date: 20060218
  Serious: Yes (Disabling)
  Sender: FDA-Public Use
  Company Number: 2005097783

PATIENT
  Age: 18 Year
  Sex: Female

DRUGS (1)
  1. CLINDAMYCIN PHOSPHATE [Suspect]
     Indication: PHARYNGITIS
     Dates: start: 20041201

REACTIONS (5)
  - ARTHROPATHY [None]
  - DYSKINESIA [None]
  - GAIT DISTURBANCE [None]
  - MUSCLE SPASTICITY [None]
  - SPEECH DISORDER [None]
